FAERS Safety Report 16011187 (Version 1)
Quarter: 2019Q1

REPORT INFORMATION
  Report Type: Report from Study
  Country: RO (occurrence: RO)
  Receive Date: 20190227
  Receipt Date: 20190227
  Transmission Date: 20190418
  Serious: Yes (Death)
  Sender: FDA-Public Use
  Company Number: RO-ROCHE-2271368

PATIENT
  Age: 79 Year
  Sex: Female
  Weight: 43 kg

DRUGS (1)
  1. MABTHERA [Suspect]
     Active Substance: RITUXIMAB
     Indication: NON-HODGKIN^S LYMPHOMA
     Route: 065
     Dates: start: 20181214

REACTIONS (3)
  - Malaise [Unknown]
  - Mobility decreased [Unknown]
  - Death [Fatal]

NARRATIVE: CASE EVENT DATE: 20190208
